FAERS Safety Report 7061391-9 (Version None)
Quarter: 2010Q4

REPORT INFORMATION
  Report Type: 
  Country: None (occurrence: None)
  Receive Date: 20101026
  Receipt Date: 20101021
  Transmission Date: 20110411
  Serious: Yes (Hospitalization)
  Sender: FDA-Public Use
  Company Number: PHHO2007DE12776

PATIENT
  Sex: Male
  Weight: 19.4 kg

DRUGS (3)
  1. ELIDEL [Suspect]
     Indication: DERMATITIS ATOPIC
     Dosage: APPLIED TWICE DAILY
     Route: 061
     Dates: start: 20041026
  2. SALBUTAMOL [Concomitant]
     Dates: start: 20061013
  3. ATROVENT [Concomitant]
     Dates: start: 20061013

REACTIONS (2)
  - BRONCHITIS [None]
  - DISEASE PROGRESSION [None]
